FAERS Safety Report 11926314 (Version 4)
Quarter: 2017Q1

REPORT INFORMATION
  Report Type: Report from Study
  Country: JP (occurrence: JP)
  Receive Date: 20160119
  Receipt Date: 20170116
  Transmission Date: 20170428
  Serious: Yes (Hospitalization)
  Sender: FDA-Public Use
  Company Number: JP-ROCHE-1695619

PATIENT
  Age: 7 Year
  Sex: Male

DRUGS (29)
  1. RITUXIMAB [Suspect]
     Active Substance: RITUXIMAB
     Indication: NEPHROTIC SYNDROME
     Dosage: INITIAL INFUSION RATE OF 25 MG/H AND THE MAXIMUM RATE OF 200 MG/H?SINGLE DOSE
     Route: 042
     Dates: start: 20141205
  2. SEPAMIT [Concomitant]
     Route: 048
     Dates: end: 20150731
  3. RITUXIMAB [Suspect]
     Active Substance: RITUXIMAB
     Dosage: SINGLE DOSE
     Route: 042
     Dates: start: 20160509
  4. PREDONINE [Concomitant]
     Active Substance: PREDNISOLONE
     Dosage: 2.5-50 MG
     Route: 048
  5. ACETAMINOPHEN. [Concomitant]
     Active Substance: ACETAMINOPHEN
     Indication: PREMEDICATION
     Route: 048
     Dates: start: 20141205, end: 20151105
  6. IPD [Concomitant]
     Active Substance: SUPLATAST TOSILATE
     Indication: ASTHMA PROPHYLAXIS
     Route: 048
  7. CICLOSPORIN [Concomitant]
     Active Substance: CYCLOSPORINE
     Indication: NEPHROTIC SYNDROME
     Route: 048
     Dates: start: 20110819
  8. NEOMALLERMIN [Concomitant]
     Active Substance: DEXCHLORPHENIRAMINE MALEATE
     Indication: PREMEDICATION
     Route: 048
     Dates: start: 20160509, end: 20160509
  9. PREDONINE [Concomitant]
     Active Substance: PREDNISOLONE
     Dosage: 0-7.5 MG
     Route: 048
     Dates: start: 20160125, end: 20160207
  10. PREDONINE [Concomitant]
     Active Substance: PREDNISOLONE
     Dosage: 0-5 MG,
     Route: 048
     Dates: start: 20160208, end: 20160303
  11. MARZULENE S [Concomitant]
     Active Substance: GLUTAMINE\SODIUM GUALENATE
     Route: 048
  12. BAKTAR [Concomitant]
     Active Substance: SULFAMETHOXAZOLE\TRIMETHOPRIM
     Indication: PROPHYLAXIS
     Route: 048
  13. PREDONINE [Concomitant]
     Active Substance: PREDNISOLONE
     Dosage: 0-10 MG
     Route: 048
     Dates: start: 20160105, end: 20160124
  14. PREDONINE [Concomitant]
     Active Substance: PREDNISOLONE
     Route: 048
     Dates: start: 20160304, end: 20160324
  15. PREDONINE [Concomitant]
     Active Substance: PREDNISOLONE
     Indication: NEPHROTIC SYNDROME
     Route: 048
     Dates: start: 20151214, end: 20151227
  16. POLARAMINE [Concomitant]
     Active Substance: DEXCHLORPHENIRAMINE MALEATE
     Indication: PREMEDICATION
     Route: 048
     Dates: start: 20141205, end: 20151105
  17. SINGULAIR [Concomitant]
     Active Substance: MONTELUKAST SODIUM
     Dosage: 1 TABLET
     Route: 048
     Dates: start: 20150817
  18. SINGULAIR [Concomitant]
     Active Substance: MONTELUKAST SODIUM
     Indication: ASTHMA PROPHYLAXIS
     Route: 048
     Dates: end: 20150816
  19. PREDNISOLONE. [Concomitant]
     Active Substance: PREDNISOLONE
     Indication: NEPHROTIC SYNDROME
     Route: 048
     Dates: start: 20150525, end: 20150609
  20. PREDONINE [Concomitant]
     Active Substance: PREDNISOLONE
     Route: 048
     Dates: start: 20151228, end: 20160104
  21. METHYLPREDNISOLONE SODIUM SUCCINATE. [Concomitant]
     Active Substance: METHYLPREDNISOLONE SODIUM SUCCINATE
     Indication: PREMEDICATION
     Route: 042
     Dates: start: 20141205, end: 20160509
  22. MYCOPHENOLATE MOFETIL. [Concomitant]
     Active Substance: MYCOPHENOLATE MOFETIL
     Indication: NEPHROTIC SYNDROME
     Route: 048
     Dates: start: 20120225
  23. SULFAMETHOXAZOLE/TRIMETHOPRIM [Concomitant]
     Active Substance: SULFAMETHOXAZOLE\TRIMETHOPRIM
     Indication: INFECTION PROPHYLAXIS
     Route: 048
  24. RITUXIMAB [Suspect]
     Active Substance: RITUXIMAB
     Dosage: SINGLE DOSE
     Route: 042
     Dates: start: 20151105
  25. RITUXIMAB [Suspect]
     Active Substance: RITUXIMAB
     Dosage: 02/AUG/2013 AND 03/AUG/2013
     Route: 042
  26. NEORAL [Concomitant]
     Active Substance: CYCLOSPORINE
     Indication: NEPHROTIC SYNDROME
     Route: 048
  27. CELLCEPT [Concomitant]
     Active Substance: MYCOPHENOLATE MOFETIL\MYCOPHENOLATE MOFETIL HYDROCHLORIDE
     Indication: NEPHROTIC SYNDROME
     Route: 048
  28. BLOPRESS [Concomitant]
     Active Substance: CANDESARTAN CILEXETIL
     Route: 048
  29. COCARL [Concomitant]
     Active Substance: ACETAMINOPHEN
     Indication: PREMEDICATION
     Dosage: DRY SYRUP. 40%
     Route: 048
     Dates: start: 20160509, end: 20160509

REACTIONS (2)
  - Influenza [Recovered/Resolved]
  - Upper respiratory tract inflammation [Recovering/Resolving]

NARRATIVE: CASE EVENT DATE: 20150915
